FAERS Safety Report 16391308 (Version 3)
Quarter: 2019Q3

REPORT INFORMATION
  Report Type: Spontaneous
  Country: US (occurrence: US)
  Receive Date: 20190604
  Receipt Date: 20190717
  Transmission Date: 20191004
  Serious: No
  Sender: FDA-Public Use
  Company Number: US-ALNYLAM PHARMACEUTICALS, INC.-ALN-2019-000344

PATIENT
  Age: 75 Year
  Sex: Female

DRUGS (1)
  1. ONPATTRO [Suspect]
     Active Substance: PATISIRAN SODIUM
     Indication: HEREDITARY NEUROPATHIC AMYLOIDOSIS
     Dosage: UNK
     Route: 042
     Dates: start: 20190419

REACTIONS (10)
  - Respiratory symptom [Unknown]
  - Product dose omission [Unknown]
  - Back pain [Unknown]
  - Sleep disorder [Unknown]
  - Urinary tract infection [Unknown]
  - Sleep disorder [Unknown]
  - Infusion related reaction [Unknown]
  - Pyrexia [Unknown]
  - Cough [Unknown]
  - Infusion related reaction [Unknown]

NARRATIVE: CASE EVENT DATE: 20190510
